FAERS Safety Report 7539772-6 (Version None)
Quarter: 2011Q2

REPORT INFORMATION
  Report Type: 
  Country: None (occurrence: None)
  Receive Date: 20110610
  Receipt Date: 20110528
  Transmission Date: 20111010
  Serious: Yes (Other)
  Sender: FDA-Public Use
  Company Number: PHHY2011US47569

PATIENT
  Sex: Female

DRUGS (8)
  1. SPIRIVA [Concomitant]
  2. ALBUTEROL SULFATE AUTOHALER [Concomitant]
  3. MULTI-VITAMIN [Concomitant]
  4. SIMVASTATIN [Concomitant]
  5. RECLAST [Suspect]
     Dosage: 5 MG, UNK
     Route: 042
     Dates: start: 20110426
  6. ADVAIR DISKUS 100/50 [Concomitant]
  7. CALTRATE +D [Concomitant]
  8. VITAMIN D [Concomitant]
     Dosage: 1000 U, UNK

REACTIONS (1)
  - BONE NEOPLASM MALIGNANT [None]
